FAERS Safety Report 25145939 (Version 1)
Quarter: 2025Q2

REPORT INFORMATION
  Report Type: Spontaneous
  Country: US (occurrence: US)
  Receive Date: 20250401
  Receipt Date: 20250401
  Transmission Date: 20250717
  Serious: No
  Sender: LIFE MOLECULAR IMAGING LTD
  Company Number: US-Life Molecular Imaging Ltd-2174039

PATIENT
  Sex: Male

DRUGS (1)
  1. NEURACEQ [Suspect]
     Active Substance: FLORBETABEN F-18
     Indication: Imaging procedure
     Dates: start: 20240307, end: 20240307

REACTIONS (1)
  - Pruritus [Recovered/Resolved]

NARRATIVE: CASE EVENT DATE: 20240307
